FAERS Safety Report 14401280 (Version 1)
Quarter: 2018Q1

REPORT INFORMATION
  Report Type: Spontaneous
  Country: US (occurrence: US)
  Receive Date: 20180114
  Receipt Date: 20180114
  Transmission Date: 20180509
  Serious: No
  Sender: FDA-Public Use
  Company Number: None

PATIENT
  Age: 52 Year
  Sex: Female

DRUGS (1)
  1. TALTZ [Suspect]
     Active Substance: IXEKIZUMAB
     Indication: MYOCARDITIS
     Dosage: 80MG SQ Q4 WEEKS
     Route: 058
     Dates: start: 20170911

REACTIONS (2)
  - Depression [None]
  - Influenza like illness [None]

NARRATIVE: CASE EVENT DATE: 20180112
